FAERS Safety Report 7630783-9 (Version None)
Quarter: 2011Q3

REPORT INFORMATION
  Report Type: 
  Country: None (occurrence: None)
  Receive Date: 20110722
  Receipt Date: 20110713
  Transmission Date: 20111222
  Serious: Yes (Hospitalization, Other)
  Sender: FDA-Public Use
  Company Number: US-ASTRAZENECA-2008UW18519

PATIENT
  Age: 74 Year
  Sex: Female
  Weight: 63 kg

DRUGS (3)
  1. AMINO ACID INJ [Concomitant]
  2. CRESTOR [Suspect]
     Indication: HYPERCHOLESTEROLAEMIA
     Route: 048
     Dates: start: 20040101
  3. PLAVIX [Concomitant]
     Dates: end: 20080905

REACTIONS (17)
  - DYSURIA [None]
  - CHROMATURIA [None]
  - DIZZINESS [None]
  - HIP FRACTURE [None]
  - HAEMATURIA [None]
  - CARDIAC MURMUR [None]
  - REFUSAL OF TREATMENT BY PATIENT [None]
  - CORONARY ARTERIAL STENT INSERTION [None]
  - BIPOLAR DISORDER [None]
  - THROMBOSIS [None]
  - CALCINOSIS [None]
  - BLOOD PRESSURE INCREASED [None]
  - NEPHROLITHIASIS [None]
  - GAIT DISTURBANCE [None]
  - BLOOD CHOLESTEROL DECREASED [None]
  - COGNITIVE DISORDER [None]
  - MUSCLE SPASMS [None]
